FAERS Safety Report 13243234 (Version 1)
Quarter: 2017Q1

REPORT INFORMATION
  Report Type: Spontaneous
  Country: US (occurrence: US)
  Receive Date: 20170217
  Receipt Date: 20170217
  Transmission Date: 20170428
  Serious: No
  Sender: FDA-Public Use
  Company Number: US-ASTRAZENECA-2017SE15038

PATIENT
  Age: 976 Month
  Sex: Female
  Weight: 49.9 kg

DRUGS (2)
  1. PULMICORT RESPULES [Suspect]
     Active Substance: BUDESONIDE
     Indication: ASTHMA
     Dosage: GENERIC BUDESONIDE INHALATION, TWO TIMES A DAY
     Route: 055
     Dates: start: 201611, end: 201701
  2. PULMICORT RESPULES [Suspect]
     Active Substance: BUDESONIDE
     Indication: ASTHMA
     Route: 055
     Dates: start: 201701

REACTIONS (5)
  - Off label use [Unknown]
  - Weight fluctuation [Unknown]
  - Intentional product misuse [Unknown]
  - Drug administered to patient of inappropriate age [Unknown]
  - Cardiac failure congestive [Unknown]

NARRATIVE: CASE EVENT DATE: 201701
